FAERS Safety Report 9492501 (Version 2)
Quarter: 2013Q3

REPORT INFORMATION
  Report Type: Spontaneous
  Country: IE (occurrence: IE)
  Receive Date: 20130830
  Receipt Date: 20130830
  Transmission Date: 20140515
  Serious: Yes (Other)
  Sender: FDA-Public Use
  Company Number: IE-JNJFOC-20120208617

PATIENT
  Sex: Female

DRUGS (19)
  1. SIMPONI [Suspect]
     Indication: ARTHROPATHY
     Route: 058
     Dates: start: 20110824
  2. SIMPONI [Suspect]
     Indication: ARTHROPATHY
     Route: 058
     Dates: start: 20110914
  3. ONE ALPHA [Concomitant]
  4. PULMICORT [Concomitant]
  5. PLAQUENIL [Concomitant]
  6. DUROGESIC [Concomitant]
  7. MOTILIUM [Concomitant]
  8. IMURAN [Concomitant]
  9. FOSAMAX [Concomitant]
  10. LIDOCAINE [Concomitant]
  11. DIFENE [Concomitant]
  12. ZIMOVANE [Concomitant]
  13. AMITRIPTYLINE [Concomitant]
  14. OMACOR [Concomitant]
  15. NEXAZOLE [Concomitant]
  16. IDEOS [Concomitant]
  17. DELTACORTRIL [Concomitant]
  18. ZISMIRT [Concomitant]
  19. VENTOLIN [Concomitant]

REACTIONS (6)
  - Muscle atrophy [Unknown]
  - Neoplasm malignant [Unknown]
  - Coronary artery disease [Unknown]
  - Memory impairment [Unknown]
  - Disorientation [Unknown]
  - Confusional state [Not Recovered/Not Resolved]
